FAERS Safety Report 18863102 (Version 2)
Quarter: 2021Q1

REPORT INFORMATION
  Report Type: Spontaneous
  Country: TW (occurrence: TW)
  Receive Date: 20210208
  Receipt Date: 20210317
  Transmission Date: 20210420
  Serious: Yes (Hospitalization)
  Sender: FDA-Public Use
  Company Number: TW-EISAI MEDICAL RESEARCH-EC-2021-087283

PATIENT
  Age: 38 Year
  Sex: Female
  Weight: 55 kg

DRUGS (3)
  1. AVASTIN [Concomitant]
     Active Substance: BEVACIZUMAB
     Indication: BREAST CANCER METASTATIC
     Dosage: 75 (UNIT NOT PROVIDED)
     Route: 065
  2. HALAVEN [Suspect]
     Active Substance: ERIBULIN MESYLATE
     Indication: BREAST CANCER METASTATIC
     Route: 041
     Dates: start: 20210127, end: 20210127
  3. HALAVEN [Suspect]
     Active Substance: ERIBULIN MESYLATE
     Route: 041
     Dates: start: 2021

REACTIONS (2)
  - Bacterial infection [Unknown]
  - Pyrexia [Recovered/Resolved]

NARRATIVE: CASE EVENT DATE: 20210127
